FAERS Safety Report 11963268 (Version 1)
Quarter: 2016Q1

REPORT INFORMATION
  Report Type: Spontaneous
  Country: US (occurrence: None)
  Receive Date: 20160121
  Receipt Date: 20160121
  Transmission Date: 20160526
  Serious: Yes (Disabling)
  Sender: FDA-Public Use
  Company Number: None

PATIENT
  Age: 62 Year
  Sex: Female
  Weight: 92.53 kg

DRUGS (1)
  1. NEULASTA [Suspect]
     Active Substance: PEGFILGRASTIM
     Indication: CHEMOTHERAPY
     Dosage: INJECTION, AFTER EACH CHEMO, INTO THE MUSCLE
     Dates: start: 20150715, end: 20151008

REACTIONS (6)
  - Tendon rupture [None]
  - Muscular weakness [None]
  - Bone pain [None]
  - Sensory disturbance [None]
  - Pain in extremity [None]
  - Insomnia [None]
